FAERS Safety Report 14605812 (Version 1)
Quarter: 2018Q1

REPORT INFORMATION
  Report Type: Spontaneous
  Country: FR (occurrence: FR)
  Receive Date: 20180306
  Receipt Date: 20180306
  Transmission Date: 20180509
  Serious: Yes (Congenital Anomaly)
  Sender: FDA-Public Use
  Company Number: FR-MERCK KGAA-2043114

PATIENT
  Sex: Male
  Weight: 3 kg

DRUGS (2)
  1. NOVOTHYROX [Suspect]
     Active Substance: LEVOTHYROXINE SODIUM
  2. NEO-MERCAZOLE [Suspect]
     Active Substance: CARBIMAZOLE

REACTIONS (4)
  - Pyloric stenosis [Recovered/Resolved]
  - Pulmonary valve thickening [Unknown]
  - Premature baby [Recovered/Resolved]
  - Vitello-intestinal duct remnant [Recovered/Resolved]

NARRATIVE: CASE EVENT DATE: 201612
